FAERS Safety Report 11681686 (Version 4)
Quarter: 2016Q2

REPORT INFORMATION
  Report Type: Report from Study
  Country: NL (occurrence: NL)
  Receive Date: 20151029
  Receipt Date: 20160617
  Transmission Date: 20160815
  Serious: Yes (Death, Hospitalization, Other)
  Sender: FDA-Public Use
  Company Number: NL-ROCHE-1651441

PATIENT

DRUGS (14)
  1. MITOMYCIN C [Suspect]
     Active Substance: MITOMYCIN
     Indication: NEOPLASM MALIGNANT
     Dosage: DAY 1
     Route: 065
  2. CAPECITABINE. [Suspect]
     Active Substance: CAPECITABINE
     Indication: NEOPLASM MALIGNANT
     Dosage: ON DAYS 1-14, EVERY THREE WEEKS
     Route: 065
  3. CISPLATIN. [Suspect]
     Active Substance: CISPLATIN
     Indication: NEOPLASM MALIGNANT
     Dosage: DAY 1
     Route: 065
  4. IRINOTECAN [Suspect]
     Active Substance: IRINOTECAN
     Indication: NEOPLASM MALIGNANT
     Dosage: DAY 1
     Route: 065
  5. FLUOROURACIL. [Suspect]
     Active Substance: FLUOROURACIL
     Indication: NEOPLASM MALIGNANT
     Route: 065
  6. CARBOPLATIN. [Suspect]
     Active Substance: CARBOPLATIN
     Indication: NEOPLASM MALIGNANT
     Dosage: DAY 1
     Route: 065
  7. LAPATINIB [Suspect]
     Active Substance: LAPATINIB
     Indication: NEOPLASM MALIGNANT
     Route: 065
  8. LEUCOVORIN. [Suspect]
     Active Substance: LEUCOVORIN
     Indication: NEOPLASM MALIGNANT
     Route: 065
  9. CYCLOPHOSPHAMIDE. [Suspect]
     Active Substance: CYCLOPHOSPHAMIDE
     Indication: NEOPLASM MALIGNANT
     Dosage: DAY 1
     Route: 065
  10. EPIRUBICIN [Suspect]
     Active Substance: EPIRUBICIN
     Indication: NEOPLASM MALIGNANT
     Dosage: DAY 1
     Route: 065
  11. PACLITAXEL. [Suspect]
     Active Substance: PACLITAXEL
     Indication: NEOPLASM MALIGNANT
     Dosage: ON DAY 1- DAY 8
     Route: 065
  12. VINORELBINE [Suspect]
     Active Substance: VINORELBINE\VINORELBINE TARTRATE
     Indication: NEOPLASM MALIGNANT
     Route: 065
  13. OXALIPLATIN. [Suspect]
     Active Substance: OXALIPLATIN
     Indication: NEOPLASM MALIGNANT
     Dosage: DAY 1
     Route: 065
  14. DOCETAXEL. [Suspect]
     Active Substance: DOCETAXEL
     Indication: NEOPLASM MALIGNANT
     Dosage: DAY 1
     Route: 065

REACTIONS (10)
  - Mucosal inflammation [Unknown]
  - Gastrointestinal toxicity [Fatal]
  - Diarrhoea [Unknown]
  - Cardiotoxicity [Unknown]
  - Leukopenia [Unknown]
  - Palmar-plantar erythrodysaesthesia syndrome [Unknown]
  - Neutropenia [Unknown]
  - Haematotoxicity [Fatal]
  - Thrombocytopenia [Unknown]
  - Chest pain [Unknown]
